FAERS Safety Report 6398480-8 (Version None)
Quarter: 2009Q4

REPORT INFORMATION
  Report Type: 
  Country: None (occurrence: None)
  Receive Date: 20091013
  Receipt Date: 20091001
  Transmission Date: 20100525
  Serious: Yes (Hospitalization)
  Sender: FDA-Public Use
  Company Number: B0498288A

PATIENT
  Age: 63 Year
  Sex: Male

DRUGS (7)
  1. AMOXICILLIN [Suspect]
     Indication: PROPHYLAXIS
     Dosage: 500MG THREE TIMES PER DAY
     Route: 048
  2. IBUPROFEN [Concomitant]
     Dosage: 800MG THREE TIMES PER DAY
  3. TAMSULOSIN [Concomitant]
     Dosage: .4MG AT NIGHT
  4. ASCORBIC ACID [Concomitant]
     Dosage: 1000MG PER DAY
  5. CALCIUM CARBONATE [Concomitant]
  6. VITAMIN D [Concomitant]
     Dosage: 200IU PER DAY
  7. LORATADINE [Concomitant]
     Dosage: 10MG AS REQUIRED

REACTIONS (13)
  - ABDOMINAL PAIN [None]
  - COLITIS [None]
  - DIARRHOEA [None]
  - ENTEROCOLITIS HAEMORRHAGIC [None]
  - GASTROINTESTINAL DISORDER [None]
  - GASTROINTESTINAL SOUNDS ABNORMAL [None]
  - HAEMATOCHEZIA [None]
  - INTESTINAL ISCHAEMIA [None]
  - KLEBSIELLA INFECTION [None]
  - NEUTROPHIL COUNT INCREASED [None]
  - PNEUMATOSIS [None]
  - RECTAL HAEMORRHAGE [None]
  - WHITE BLOOD CELL COUNT INCREASED [None]
